FAERS Safety Report 4450373-9 (Version None)
Quarter: 2004Q3

REPORT INFORMATION
  Report Type: 
  Country: None (occurrence: None)
  Receive Date: 20040914
  Receipt Date: 20040826
  Transmission Date: 20050211
  Serious: Yes (Death, Life-Threatening, Hospitalization)
  Sender: FDA-Public Use
  Company Number: A-CH2004-05485

PATIENT
  Age: 42 Year
  Sex: Male

DRUGS (11)
  1. TRACLEER [Suspect]
     Indication: PULMONARY HYPERTENSION
     Dosage: 125 MG, BID, ORAL
     Route: 048
     Dates: start: 20030703, end: 20031126
  2. SPIRONOLACTONE [Concomitant]
  3. DILZEM ^ELAN^ (DILTIAZEM HYDROCHLORIDE) [Concomitant]
  4. PANTOZOL (PANTOPRAZOLE SODIUM) [Concomitant]
  5. TOREM (TORASEMIDE) [Concomitant]
  6. MARCUMAR [Concomitant]
  7. LEVOTHYROXINE SODIUM [Concomitant]
  8. LACTULOSE [Concomitant]
  9. DIGITOXIN TAB [Concomitant]
  10. REKAWAN (POTASSIUM CHLORIDE) [Concomitant]
  11. CIPROFLOXACIN [Concomitant]

REACTIONS (7)
  - CARDIAC FAILURE [None]
  - CONDITION AGGRAVATED [None]
  - DIALYSIS [None]
  - RENAL FAILURE [None]
  - RESPIRATORY FAILURE [None]
  - SHOCK [None]
  - WEIGHT DECREASED [None]
